FAERS Safety Report 8398433-4 (Version None)
Quarter: 2012Q2

REPORT INFORMATION
  Report Type: 
  Country: None (occurrence: None)
  Receive Date: 20120323
  Receipt Date: 20110413
  Transmission Date: 20120825
  Serious: Yes (Hospitalization, Other)
  Sender: FDA-Public Use
  Company Number: 163-21880-10082738

PATIENT
  Age: 78 Year
  Sex: Female
  Weight: 55.611 kg

DRUGS (9)
  1. MULTIPLE VITAMINS (MULTIVITAINS) [Concomitant]
  2. DEXAMETHASONE [Concomitant]
  3. REVLIMID [Suspect]
     Indication: MULTIPLE MYELOMA
     Dosage: 25 MG, 1 IN 1 D, PO 15 MG, FOR 21 DAYS, PO
     Route: 048
     Dates: start: 20100930
  4. REVLIMID [Suspect]
     Indication: MULTIPLE MYELOMA
     Dosage: 25 MG, 1 IN 1 D, PO 15 MG, FOR 21 DAYS, PO
     Route: 048
     Dates: start: 20100721
  5. ZOMETA [Concomitant]
  6. LISINOPRIL [Concomitant]
  7. BP RX (ANTIHYPERTENSIVES) [Concomitant]
  8. HYDROCHLOROTHIAZIDE [Concomitant]
  9. CALCIUM 600 +D (TABLETS) [Concomitant]

REACTIONS (8)
  - LOSS OF CONSCIOUSNESS [None]
  - COLITIS ISCHAEMIC [None]
  - DEHYDRATION [None]
  - ASTHENIA [None]
  - ANAEMIA [None]
  - DIARRHOEA [None]
  - ADVERSE REACTION [None]
  - LOWER GASTROINTESTINAL HAEMORRHAGE [None]
